FAERS Safety Report 23648692 (Version 1)
Quarter: 2024Q1

REPORT INFORMATION
  Report Type: Spontaneous
  Country: US (occurrence: None)
  Receive Date: 20240318
  Receipt Date: 20240318
  Transmission Date: 20240409
  Serious: Yes (Hospitalization)
  Sender: FDA-Public Use
  Company Number: None

PATIENT
  Age: 67 Year
  Sex: Female

DRUGS (3)
  1. SILDENAFIL CITRATE [Suspect]
     Active Substance: SILDENAFIL CITRATE
     Indication: Pulmonary arterial hypertension
     Dosage: 40MG THREE TIMES DAILY BY MOUTH?
     Route: 048
     Dates: start: 201810
  2. UPTRAVI [Suspect]
     Active Substance: SELEXIPAG
  3. OPSUMIT [Concomitant]

REACTIONS (2)
  - Product dose omission in error [None]
  - Hypotension [None]

NARRATIVE: CASE EVENT DATE: 20240311
